FAERS Safety Report 9916081 (Version 1)
Quarter: 2014Q1

REPORT INFORMATION
  Report Type: Report from Study
  Country: US (occurrence: US)
  Receive Date: 20140221
  Receipt Date: 20140221
  Transmission Date: 20141002
  Serious: Yes (Other)
  Sender: FDA-Public Use
  Company Number: US-ROCHE-1352221

PATIENT
  Sex: Female

DRUGS (3)
  1. LUCENTIS [Suspect]
     Indication: MACULAR DEGENERATION
     Dosage: LEFT EYE
     Route: 065
     Dates: start: 201310
  2. LASIX [Concomitant]
  3. GLIPIZIDE [Concomitant]
     Route: 065

REACTIONS (2)
  - Blindness [Unknown]
  - Visual acuity reduced [Unknown]
